FAERS Safety Report 18297900 (Version 1)
Quarter: 2020Q3

REPORT INFORMATION
  Report Type: Spontaneous
  Country: US (occurrence: US)
  Receive Date: 20200922
  Receipt Date: 20200922
  Transmission Date: 20201103
  Serious: No
  Sender: FDA-Public Use
  Company Number: US-AMNEAL PHARMACEUTICALS-2020-AMRX-01843

PATIENT
  Sex: Female

DRUGS (1)
  1. BUDESONIDE. [Suspect]
     Active Substance: BUDESONIDE
     Indication: EOSINOPHILIC OESOPHAGITIS
     Dosage: 2 AMPOULES A DAY, ONE IN MORNING AND ANOTHER IN AFTERNOON
     Route: 048

REACTIONS (4)
  - Thirst [Unknown]
  - Decreased appetite [Unknown]
  - Off label use [Unknown]
  - Product use issue [Unknown]
